FAERS Safety Report 9753716 (Version 2)
Quarter: 2013Q4

REPORT INFORMATION
  Report Type: Spontaneous
  Country: JP (occurrence: JP)
  Receive Date: 20131213
  Receipt Date: 20131230
  Transmission Date: 20140711
  Serious: Yes (Hospitalization, Other)
  Sender: FDA-Public Use
  Company Number: PHHY2013JP143680

PATIENT
  Sex: 0

DRUGS (4)
  1. ATORVASTATIN SANDOZ [Suspect]
     Route: 048
  2. NU-LOTAN [Concomitant]
     Dosage: 50 MG, DAILY
     Route: 048
  3. PARIET [Concomitant]
     Dosage: 10 MG, DAILY
     Route: 048
  4. ARTIST [Concomitant]
     Dosage: 5 MG, DAILY
     Route: 048

REACTIONS (4)
  - Rhabdomyolysis [Unknown]
  - Blood creatine phosphokinase increased [Unknown]
  - Road traffic accident [Unknown]
  - Circulatory collapse [Unknown]
